FAERS Safety Report 8389155 (Version 2)
Quarter: 2013Q2

REPORT INFORMATION
  Report Type: Spontaneous
  Country: US (occurrence: US)
  Receive Date: 20120203
  Receipt Date: 20130401
  Transmission Date: 20140414
  Serious: Yes (Other)
  Sender: FDA-Public Use
  Company Number: US-ASTRAZENECA-2011SE35634

PATIENT
  Age: 21918 Day
  Sex: Female

DRUGS (9)
  1. CAPRELSA [Suspect]
     Indication: THYROID CANCER
     Route: 048
     Dates: start: 20110327
  2. CAPRELSA [Suspect]
     Indication: THYROID CANCER
     Route: 048
     Dates: start: 20110526, end: 20130301
  3. TENORMIN [Suspect]
     Route: 048
  4. ZESTRIL [Suspect]
     Route: 048
  5. ATENOLOL [Concomitant]
  6. LISINOPRIL [Concomitant]
  7. MULTIVITAMIN [Concomitant]
  8. CALCIUM D [Concomitant]
  9. LEVOTHYROXINE SODIUM [Concomitant]

REACTIONS (5)
  - Polyarteritis nodosa [Recovering/Resolving]
  - Pain in extremity [Unknown]
  - Blood thyroid stimulating hormone decreased [Unknown]
  - Adverse reaction [Unknown]
  - Rash [Recovering/Resolving]
